FAERS Safety Report 17852331 (Version 1)
Quarter: 2020Q2

REPORT INFORMATION
  Report Type: Report from Study
  Country: FR (occurrence: FR)
  Receive Date: 20200602
  Receipt Date: 20200602
  Transmission Date: 20200714
  Serious: Yes (Other)
  Sender: FDA-Public Use
  Company Number: FR-JAZZ-2020-FR-007113

PATIENT

DRUGS (1)
  1. DEFITELIO [Suspect]
     Active Substance: DEFIBROTIDE SODIUM
     Indication: VENOOCCLUSIVE DISEASE
     Dosage: 85.6 MG IV PER 24 HOURS
     Route: 042
     Dates: start: 20190813, end: 20190826

REACTIONS (3)
  - Epstein-Barr virus infection [Unknown]
  - Cytomegalovirus infection reactivation [Unknown]
  - Off label use [Unknown]

NARRATIVE: CASE EVENT DATE: 20190813
